FAERS Safety Report 12632383 (Version 2)
Quarter: 2016Q3

REPORT INFORMATION
  Report Type: Spontaneous
  Country: US (occurrence: US)
  Receive Date: 20160808
  Receipt Date: 20160808
  Transmission Date: 20161109
  Serious: No
  Sender: FDA-Public Use
  Company Number: US-BEH-2016062683

PATIENT
  Sex: Female
  Weight: 77 kg

DRUGS (17)
  1. BUPROPION HYDROCHLORIDE XL [Concomitant]
     Active Substance: BUPROPION HYDROCHLORIDE
  2. METOPROLOL SUCC [Concomitant]
     Active Substance: METOPROLOL SUCCINATE
  3. HIZENTRA [Suspect]
     Active Substance: HUMAN IMMUNOGLOBULIN G
     Indication: HYPOGAMMAGLOBULINAEMIA
     Route: 058
  4. EPIPEN [Concomitant]
     Active Substance: EPINEPHRINE
  5. ASACOL HD [Concomitant]
     Active Substance: MESALAMINE
  6. ASPIRIN. [Concomitant]
     Active Substance: ASPIRIN
  7. HYDROCODON-ACETAMINOPH [Concomitant]
  8. CALCIUM [Concomitant]
     Active Substance: CALCIUM
  9. MUCINEX [Concomitant]
     Active Substance: GUAIFENESIN
  10. ACETAMINOPHEN. [Concomitant]
     Active Substance: ACETAMINOPHEN
  11. CENTRUM [Concomitant]
     Active Substance: VITAMINS
  12. LIDOCAINE/PRILOCAINE [Concomitant]
     Active Substance: LIDOCAINE\PRILOCAINE
  13. L-M-X [Concomitant]
  14. CRESTOR [Concomitant]
     Active Substance: ROSUVASTATIN CALCIUM
  15. LUNESTA [Concomitant]
     Active Substance: ESZOPICLONE
  16. DIPHENHYDRAMINE. [Concomitant]
     Active Substance: DIPHENHYDRAMINE
  17. VITAMIN D [Concomitant]
     Active Substance: CHOLECALCIFEROL

REACTIONS (1)
  - Sinusitis [Unknown]
